FAERS Safety Report 9344093 (Version 1)
Quarter: 2013Q2

REPORT INFORMATION
  Report Type: Spontaneous
  Country: FR (occurrence: FR)
  Receive Date: 20130612
  Receipt Date: 20130612
  Transmission Date: 20140414
  Serious: Yes (Life-Threatening, Hospitalization)
  Sender: FDA-Public Use
  Company Number: FR-SANOFI-AVENTIS-2013SA057729

PATIENT
  Age: 73 Year
  Sex: Female
  Weight: 66 kg

DRUGS (14)
  1. LOVENOX [Suspect]
     Indication: THROMBOSIS PROPHYLAXIS
     Dosage: STRENGTH:0.4 ML
     Route: 058
     Dates: start: 20130204, end: 20130205
  2. LOVENOX [Suspect]
     Indication: ARRHYTHMIA
     Dosage: STRENGTH:0.4 ML
     Route: 058
     Dates: start: 20130204, end: 20130205
  3. LOVENOX [Suspect]
     Indication: THROMBOSIS PROPHYLAXIS
     Route: 058
     Dates: start: 20130205, end: 20130208
  4. LOVENOX [Suspect]
     Indication: ARRHYTHMIA
     Route: 058
     Dates: start: 20130205, end: 20130208
  5. CORDARONE [Concomitant]
     Indication: ARRHYTHMIA
     Route: 048
     Dates: start: 20130205, end: 20130207
  6. CORDARONE [Concomitant]
     Indication: ARRHYTHMIA
     Route: 048
     Dates: start: 20130208
  7. ZOMETA [Concomitant]
     Route: 042
     Dates: start: 20130215
  8. REVLIMID [Concomitant]
     Dates: start: 20130218, end: 20130310
  9. DEXAMETHASONE [Concomitant]
     Dosage: FREQUENCY: 1 TIME WEEKLY
     Dates: start: 20130218
  10. REPAGLINIDE [Concomitant]
     Indication: GLAUCOMA
     Dates: start: 20130306, end: 20130308
  11. REPAGLINIDE [Concomitant]
     Indication: HYPERGLYCAEMIA
     Dates: start: 20130306, end: 20130308
  12. MOVICOL [Concomitant]
     Dosage: SACHETS
     Route: 048
     Dates: start: 20130306, end: 20130311
  13. TAHOR [Concomitant]
     Route: 048
  14. LEVOTHYROX [Concomitant]
     Route: 048

REACTIONS (3)
  - Renal failure [Recovered/Resolved]
  - Muscle haemorrhage [Recovering/Resolving]
  - Anaemia [Recovered/Resolved]
